FAERS Safety Report 5599463-8 (Version None)
Quarter: 2007Q4

REPORT INFORMATION
  Report Type: 
  Country: None (occurrence: None)
  Receive Date: 20071226
  Receipt Date: 20070423
  Transmission Date: 20080405
  Serious: Yes (Disabling, Other)
  Sender: FDA-Public Use
  Company Number: 012783

PATIENT
  Age: 70 Year
  Sex: Female
  Weight: 61.2 kg

DRUGS (3)
  1. ETHAMBUTOL HYDROCHLORIDE [Suspect]
     Indication: MYCOBACTERIUM AVIUM COMPLEX INFECTION
     Dosage: 1 TABLET, TID, ORAL
     Route: 048
     Dates: start: 20060701, end: 20061201
  2. BIAXIN [Concomitant]
  3. RIFAMPICIN [Concomitant]

REACTIONS (3)
  - COLOUR BLINDNESS [None]
  - OPTIC NEUROPATHY [None]
  - VISION BLURRED [None]
